FAERS Safety Report 26127577 (Version 3)
Quarter: 2025Q4

REPORT INFORMATION
  Report Type: Report from Study
  Country: US (occurrence: US)
  Receive Date: 20251206
  Receipt Date: 20251210
  Transmission Date: 20260117
  Serious: No
  Sender: SANDOZ
  Company Number: US-SANDOZ-SDZ2025US091008

PATIENT
  Sex: Male

DRUGS (2)
  1. OMNITROPE [Suspect]
     Active Substance: SOMATROPIN
     Indication: Short stature
     Dosage: 0.9 MG, QD, STRENGTH:5 MG/1.5 ML  SOLUTION FOR INJECTION IN CARTRIDGE
     Route: 058
  2. OMNITROPE [Suspect]
     Active Substance: SOMATROPIN
     Indication: Short stature
     Dosage: 0.9 MG, QD, STRENGTH:5 MG/1.5 ML  SOLUTION FOR INJECTION IN CARTRIDGE
     Route: 058

REACTIONS (2)
  - Injection site haemorrhage [Unknown]
  - Injection site erythema [Unknown]
